FAERS Safety Report 8789206 (Version 1)
Quarter: 2012Q4

REPORT INFORMATION
  Report Type: Spontaneous
  Country: US (occurrence: None)
  Receive Date: 20120910
  Receipt Date: 20120910
  Transmission Date: 20130627
  Serious: Yes (Other)
  Sender: FDA-Public Use
  Company Number: None

PATIENT
  Age: 23 Year
  Sex: Male
  Weight: 53 kg

DRUGS (1)
  1. ROACCUTANE [Suspect]

REACTIONS (17)
  - Dry skin [None]
  - Epistaxis [None]
  - Eye irritation [None]
  - Alopecia [None]
  - Trichorrhexis [None]
  - Alopecia [None]
  - Depression [None]
  - Fatigue [None]
  - Pain [None]
  - Fatigue [None]
  - Hypoaesthesia [None]
  - Bone disorder [None]
  - Arthralgia [None]
  - Suicidal ideation [None]
  - Impaired healing [None]
  - Conjunctivitis [None]
  - Myalgia [None]
